FAERS Safety Report 5730627-6 (Version None)
Quarter: 2008Q2

REPORT INFORMATION
  Report Type: 
  Country: None (occurrence: None)
  Receive Date: 20080502
  Receipt Date: 20080418
  Transmission Date: 20081010
  Serious: Yes (Other)
  Sender: FDA-Public Use
  Company Number: 2008S1006961

PATIENT
  Age: 37 Year
  Sex: Male

DRUGS (7)
  1. AZATHIOPRINE [Suspect]
     Indication: IMMUNOSUPPRESSION
     Dosage: 2.5 MG/KG; DAILY
     Dates: start: 20050901, end: 20061001
  2. ETHANOL       (ETHANOL) [Suspect]
     Dosage: 800 GM; TOTAL; 20 GM; DAILY
     Route: 048
     Dates: start: 20060701, end: 20060701
  3. ETHANOL       (ETHANOL) [Suspect]
     Dosage: 800 GM; TOTAL; 20 GM; DAILY
     Route: 048
     Dates: start: 20060701, end: 20060801
  4. ETHANOL       (ETHANOL) [Suspect]
     Dosage: 800 GM; TOTAL; 20 GM; DAILY
     Route: 048
     Dates: start: 20060801, end: 20060801
  5. MESALAMINE [Concomitant]
  6. METRONIDAZOLE [Concomitant]
  7. PREDNISOLONE [Concomitant]

REACTIONS (11)
  - ABDOMINAL DISCOMFORT [None]
  - FATIGUE [None]
  - HEPATITIS CHOLESTATIC [None]
  - HEPATOMEGALY [None]
  - HYALURONIC ACID INCREASED [None]
  - PANCYTOPENIA [None]
  - PELIOSIS HEPATIS [None]
  - PORTAL HYPERTENSION [None]
  - PRURITUS [None]
  - SMALL INTESTINAL OBSTRUCTION [None]
  - SPLENOMEGALY [None]
